FAERS Safety Report 12376212 (Version 1)
Quarter: 2016Q2

REPORT INFORMATION
  Report Type: Spontaneous
  Country: US (occurrence: None)
  Receive Date: 20160516
  Receipt Date: 20160516
  Transmission Date: 20160815
  Serious: No
  Sender: FDA-Public Use
  Company Number: None

PATIENT
  Age: 48 Year
  Sex: Female
  Weight: 64 kg

DRUGS (3)
  1. PROCARBAZINE [Suspect]
     Active Substance: PROCARBAZINE
     Dates: end: 20160308
  2. RITUXIMAB (MOAB C2B8 ANTI CD20, CHIMERIC) [Suspect]
     Active Substance: RITUXIMAB
     Dates: end: 20160307
  3. METHOTREXATE [Suspect]
     Active Substance: METHOTREXATE
     Dates: end: 20160309

REACTIONS (1)
  - White blood cell count decreased [None]

NARRATIVE: CASE EVENT DATE: 20160314
